FAERS Safety Report 20310246 (Version 1)
Quarter: 2022Q1

REPORT INFORMATION
  Report Type: Spontaneous
  Country: CA (occurrence: None)
  Receive Date: 20220107
  Receipt Date: 20220107
  Transmission Date: 20220424
  Serious: Yes (Other)
  Sender: FDA-Public Use
  Company Number: CA-PFIZER INC-202101871689

PATIENT
  Age: 42 Year
  Sex: Female

DRUGS (4)
  1. METHOTREXATE [Suspect]
     Active Substance: METHOTREXATE
     Indication: Product used for unknown indication
     Route: 065
  2. PREDNISONE [Concomitant]
     Active Substance: PREDNISONE
     Route: 065
  3. PLAQUENIL [Concomitant]
     Active Substance: HYDROXYCHLOROQUINE SULFATE
     Route: 065
  4. SULFASALAZINE [Concomitant]
     Active Substance: SULFASALAZINE
     Route: 065

REACTIONS (5)
  - Joint swelling [Unknown]
  - Arthralgia [Unknown]
  - Drug intolerance [Unknown]
  - Rheumatoid factor positive [Unknown]
  - Anti-cyclic citrullinated peptide antibody positive [Unknown]

NARRATIVE: CASE EVENT DATE: 20211216
